FAERS Safety Report 11831763 (Version 1)
Quarter: 2015Q4

REPORT INFORMATION
  Report Type: Spontaneous
  Country: US (occurrence: None)
  Receive Date: 20151211
  Receipt Date: 20151211
  Transmission Date: 20160305
  Serious: No
  Sender: FDA-Public Use
  Company Number: None

PATIENT
  Age: 39 Year
  Sex: Male

DRUGS (2)
  1. AMOXICILLIN. [Suspect]
     Active Substance: AMOXICILLIN
     Dates: start: 20141220, end: 20141229
  2. CEPHALEXIN. [Suspect]
     Active Substance: CEPHALEXIN
     Dates: start: 20141220, end: 20141229

REACTIONS (7)
  - Alcohol use [None]
  - Paraneoplastic syndrome [None]
  - Cholestasis [None]
  - Vanishing bile duct syndrome [None]
  - Hepatic fibrosis [None]
  - Anaplastic large cell lymphoma T- and null-cell types [None]
  - Drug-induced liver injury [None]

NARRATIVE: CASE EVENT DATE: 20150108
